FAERS Safety Report 4835000-0 (Version None)
Quarter: 2005Q4

REPORT INFORMATION
  Report Type: 
  Country: None (occurrence: None)
  Receive Date: 20051114
  Receipt Date: 20051102
  Transmission Date: 20060501
  Serious: Yes (Hospitalization)
  Sender: FDA-Public Use
  Company Number: 2005150842

PATIENT
  Age: 86 Year
  Sex: Male
  Weight: 113.3993 kg

DRUGS (1)
  1. BENADRYL [Suspect]
     Indication: URTICARIA
     Dosage: 2 TABS ONCE, ORAL
     Route: 048
     Dates: start: 20041001, end: 20041001

REACTIONS (4)
  - CONDITION AGGRAVATED [None]
  - DIABETIC ULCER [None]
  - TOE AMPUTATION [None]
  - URTICARIA [None]
